FAERS Safety Report 8815037 (Version 4)
Quarter: 2013Q3

REPORT INFORMATION
  Report Type: Spontaneous
  Country: US (occurrence: US)
  Receive Date: 20120928
  Receipt Date: 20130925
  Transmission Date: 20140515
  Serious: Yes (Hospitalization, Other)
  Sender: FDA-Public Use
  Company Number: US-PFIZER INC-2012239946

PATIENT
  Age: 64 Year
  Sex: Female
  Weight: 54.42 kg

DRUGS (6)
  1. LYRICA [Suspect]
     Indication: FIBROMYALGIA
     Dosage: 150 MG, 3X/DAY
     Dates: end: 201208
  2. LYRICA [Suspect]
     Indication: NERVE INJURY
     Dosage: UNK
     Dates: start: 2013
  3. COMBIVENT [Concomitant]
     Indication: CHRONIC OBSTRUCTIVE PULMONARY DISEASE
     Dosage: UNK
  4. LISINOPRIL [Concomitant]
     Indication: HYPERTENSION
     Dosage: UNK
  5. LORTAB [Concomitant]
     Indication: PAIN
     Dosage: UNK
  6. FORTEO [Concomitant]
     Indication: BONE DEVELOPMENT ABNORMAL
     Dosage: UNK, 1X/DAY

REACTIONS (5)
  - Rib fracture [Unknown]
  - Fall [Unknown]
  - Gastrointestinal disorder [Unknown]
  - Drug ineffective [Unknown]
  - Pain [Not Recovered/Not Resolved]
